FAERS Safety Report 18994527 (Version 2)
Quarter: 2021Q2

REPORT INFORMATION
  Report Type: Spontaneous
  Country: US (occurrence: US)
  Receive Date: 20210310
  Receipt Date: 20210427
  Transmission Date: 20210717
  Serious: No
  Sender: FDA-Public Use
  Company Number: US-MERZ PHARMACEUTICALS GMBH-21-00624

PATIENT
  Age: 5 Decade
  Sex: Female

DRUGS (1)
  1. ASCLERA [Suspect]
     Active Substance: POLIDOCANOL
     Indication: PRODUCT USED FOR UNKNOWN INDICATION
     Dates: start: 202102, end: 202102

REACTIONS (2)
  - Injection site pain [Not Recovered/Not Resolved]
  - Injection site mass [Not Recovered/Not Resolved]

NARRATIVE: CASE EVENT DATE: 202102
